FAERS Safety Report 8596320-X (Version None)
Quarter: 2012Q3

REPORT INFORMATION
  Report Type: 
  Country: None (occurrence: None)
  Receive Date: 20120815
  Receipt Date: 20120815
  Transmission Date: 20120928
  Serious: Yes (Hospitalization)
  Sender: FDA-Public Use
  Company Number: AR-TEVA-346518ISR

PATIENT
  Sex: Male

DRUGS (6)
  1. ADALIMUMAB OR PLACEBO [Suspect]
     Indication: RHEUMATOID ARTHRITIS
     Dosage: 40 MILLIGRAM DAILY;
     Route: 058
     Dates: start: 20120409, end: 20120605
  2. NAPROXEN [Suspect]
     Indication: RHEUMATOID ARTHRITIS
     Dosage: 1000 MILLIGRAM DAILY;
  3. METHOTREXATE [Suspect]
     Indication: RHEUMATOID ARTHRITIS
     Route: 048
     Dates: start: 20120409
  4. BMS 945429 OR PLACEBO [Suspect]
     Indication: RHEUMATOID ARTHRITIS
     Route: 058
     Dates: start: 20120409
  5. PREDNISONE TAB [Concomitant]
     Dates: start: 20111122
  6. FOLIC ACID [Concomitant]
     Dates: start: 20120210, end: 20120605

REACTIONS (1)
  - RENAL TUBULAR NECROSIS [None]
